FAERS Safety Report 4472807-6 (Version None)
Quarter: 2004Q4

REPORT INFORMATION
  Report Type: 
  Country: None (occurrence: None)
  Receive Date: 20041012
  Receipt Date: 20041012
  Transmission Date: 20050328
  Serious: Yes (Life-Threatening)
  Sender: FDA-Public Use
  Company Number: None

PATIENT
  Sex: Female
  Weight: 59.8748 kg

DRUGS (3)
  1. METHOTREXATE [Suspect]
     Indication: ARTHROPATHY
     Dosage: 3 CCS WEEKLY SUBCUTANEOUS
     Route: 058
     Dates: start: 20020830, end: 20030826
  2. METHOTREXATE [Suspect]
     Indication: SYSTEMIC LUPUS ERYTHEMATOSUS
     Dosage: 3 CCS WEEKLY SUBCUTANEOUS
     Route: 058
     Dates: start: 20020830, end: 20030826
  3. PLAQUENIL [Concomitant]

REACTIONS (1)
  - HODGKIN'S DISEASE [None]
